FAERS Safety Report 19930894 (Version 1)
Quarter: 2021Q4

REPORT INFORMATION
  Report Type: Spontaneous
  Country: US (occurrence: US)
  Receive Date: 20211007
  Receipt Date: 20211007
  Transmission Date: 20220303
  Serious: No
  Sender: FDA-Public Use
  Company Number: US-MYLANLABS-2021M1067371

PATIENT
  Sex: Female
  Weight: 54 kg

DRUGS (2)
  1. ESTRADIOL TRANSDERMAL SYSTEM [Suspect]
     Active Substance: ESTRADIOL
     Indication: Hormone replacement therapy
     Dosage: 0.075 MILLIGRAM, Q2W (TWICE A WEEK)
     Route: 062
  2. NYSTATIN [Concomitant]
     Active Substance: NYSTATIN
     Dosage: UNK

REACTIONS (3)
  - Product adhesion issue [Not Recovered/Not Resolved]
  - Night sweats [Not Recovered/Not Resolved]
  - Hot flush [Not Recovered/Not Resolved]
